FAERS Safety Report 7910117-2 (Version None)
Quarter: 2011Q4

REPORT INFORMATION
  Report Type: 
  Country: None (occurrence: None)
  Receive Date: 20111111
  Receipt Date: 20111104
  Transmission Date: 20120403
  Serious: Yes (Other)
  Sender: FDA-Public Use
  Company Number: CHPA2011US015807

PATIENT
  Age: 2 Year
  Sex: Male
  Weight: 14.059 kg

DRUGS (1)
  1. TRIAMINIC COLD + ALLERGY [Suspect]
     Indication: NASOPHARYNGITIS
     Dosage: 0.5 TSP, BID
     Route: 048
     Dates: start: 20111030

REACTIONS (2)
  - LOSS OF CONTROL OF LEGS [None]
  - OVERDOSE [None]
